FAERS Safety Report 8175585-2 (Version None)
Quarter: 2012Q1

REPORT INFORMATION
  Report Type: 
  Country: None (occurrence: None)
  Receive Date: 20120301
  Receipt Date: 20120221
  Transmission Date: 20120608
  Serious: Yes (Death)
  Sender: FDA-Public Use
  Company Number: US-BIOGENIDEC-2012BI006437

PATIENT
  Age: 55 Year
  Sex: Male
  Weight: 99 kg

DRUGS (18)
  1. LIPITOR [Concomitant]
     Route: 048
     Dates: start: 20091205
  2. FISH OIL [Concomitant]
     Route: 048
     Dates: start: 20100325
  3. DYAZIDE [Concomitant]
     Route: 048
  4. MULTI-VITAMINS [Concomitant]
     Dates: start: 20080429
  5. COUMADIN [Concomitant]
     Indication: ANTICOAGULANT THERAPY
     Route: 048
     Dates: start: 20101001
  6. DYAZIDE [Concomitant]
     Route: 048
  7. ASPIRIN [Concomitant]
     Route: 048
     Dates: start: 20111230
  8. LEVETIRACETAM [Concomitant]
     Route: 048
     Dates: start: 20111031
  9. EMLA [Concomitant]
     Route: 061
     Dates: start: 20100701
  10. FIBERCON [Concomitant]
     Route: 048
     Dates: start: 20060629
  11. TYSABRI [Suspect]
     Indication: MULTIPLE SCLEROSIS
     Route: 042
     Dates: start: 20070411
  12. LYRICA [Concomitant]
     Route: 048
     Dates: start: 20111031
  13. LEXAPRO [Concomitant]
     Route: 048
     Dates: start: 20110527
  14. METOPROLOL SUCCINATE [Concomitant]
     Route: 048
     Dates: start: 20091205
  15. HYDROCODONE BITARTRATE AND ACETAMINOPHEN [Concomitant]
     Route: 048
     Dates: start: 20101201
  16. ALPRAZOLAM [Concomitant]
     Route: 048
     Dates: start: 20100520
  17. HYDROCODONE BITARTRATE AND ACETAMINOPHEN [Concomitant]
     Route: 048
  18. VITAMIN D [Concomitant]
     Route: 048
     Dates: start: 20090811

REACTIONS (1)
  - DEATH [None]
